FAERS Safety Report 23875702 (Version 2)
Quarter: 2024Q2

REPORT INFORMATION
  Report Type: Report from Study
  Country: TW (occurrence: TW)
  Receive Date: 20240520
  Receipt Date: 20240611
  Transmission Date: 20240716
  Serious: Yes (Hospitalization)
  Sender: FDA-Public Use
  Company Number: TW-BIOGEN-2024BI01265330

PATIENT
  Age: 57 Year
  Sex: Female
  Weight: 59 kg

DRUGS (4)
  1. TECFIDERA [Suspect]
     Active Substance: DIMETHYL FUMARATE
     Indication: Relapsing-remitting multiple sclerosis
     Route: 050
     Dates: start: 20220629, end: 20240515
  2. METHYLPREDNISOLONE [Concomitant]
     Active Substance: METHYLPREDNISOLONE
     Indication: Relapsing-remitting multiple sclerosis
     Route: 050
     Dates: start: 20240415, end: 20240419
  3. Mecobalamin (Vit.B12) [Concomitant]
     Indication: Relapsing-remitting multiple sclerosis
     Route: 050
     Dates: start: 20240415, end: 20240419
  4. PREDNISOLONE [Concomitant]
     Active Substance: PREDNISOLONE
     Indication: Relapsing-remitting multiple sclerosis
     Route: 050
     Dates: start: 20240415, end: 20240419

REACTIONS (1)
  - Multiple sclerosis relapse [Recovered/Resolved with Sequelae]

NARRATIVE: CASE EVENT DATE: 20240415
